FAERS Safety Report 6106140-3 (Version None)
Quarter: 2009Q1

REPORT INFORMATION
  Report Type: 
  Country: None (occurrence: None)
  Receive Date: 20090306
  Receipt Date: 20090303
  Transmission Date: 20090719
  Serious: Yes (Life-Threatening, Hospitalization, Other)
  Sender: FDA-Public Use
  Company Number: PHEH2009US02129

PATIENT
  Sex: Female

DRUGS (9)
  1. OXCARBAZEPINE [Suspect]
     Dosage: 300 MG, UNK
     Dates: start: 20090201
  2. TRILEPTAL [Suspect]
     Dosage: 900MG, UNK
     Dates: start: 20040101, end: 20090201
  3. FEMARA [Concomitant]
  4. XANAX [Concomitant]
  5. SYNTHROID [Concomitant]
  6. ZOLOFT [Concomitant]
  7. TRICOR [Concomitant]
  8. BUSPIRONE HCL [Concomitant]
  9. VITAMINS [Concomitant]

REACTIONS (10)
  - ANXIETY [None]
  - CHEST PAIN [None]
  - DIZZINESS [None]
  - DYSPNOEA [None]
  - EXPIRED DRUG ADMINISTERED [None]
  - GRAND MAL CONVULSION [None]
  - HEADACHE [None]
  - HYPERTENSION [None]
  - PANIC ATTACK [None]
  - VOMITING [None]
